FAERS Safety Report 5170743-3 (Version None)
Quarter: 2006Q4

REPORT INFORMATION
  Report Type: 
  Country: None (occurrence: None)
  Receive Date: 20060919
  Receipt Date: 20060621
  Transmission Date: 20070319
  Serious: No
  Sender: FDA-Public Use
  Company Number: 2006US000929

PATIENT
  Sex: Female

DRUGS (10)
  1. VESICARE [Suspect]
     Indication: HYPERTONIC BLADDER
     Dosage: 5 MG,UID/QD, ORAL
     Route: 048
     Dates: start: 20060420
  2. BONIVA (IBANDRONATE SODIUM) [Concomitant]
  3. PROTONIX [Concomitant]
  4. SYNTHROID [Concomitant]
  5. TREXALL (METHOTREXATE SODIUM) [Concomitant]
  6. NASONEX [Concomitant]
  7. ISTALOL (TIMOLOL MALEATE) [Concomitant]
  8. LUMIGAN [Concomitant]
  9. ASPIRIN [Concomitant]
  10. TYLENOL (DEXTROMETHORPHAN HYDROBROMIDE, PSEUDOEPHEDRINE HYDROCHLORIDE, [Concomitant]

REACTIONS (2)
  - CHEST DISCOMFORT [None]
  - ERUCTATION [None]
